FAERS Safety Report 11346026 (Version 1)
Quarter: 2015Q3

REPORT INFORMATION
  Report Type: Spontaneous
  Country: US (occurrence: US)
  Receive Date: 20150803
  Receipt Date: 20150803
  Transmission Date: 20151125
  Serious: No
  Sender: FDA-Public Use
  Company Number: US-ELI_LILLY_AND_COMPANY-US200911001878

PATIENT
  Age: 27 Year
  Sex: Male

DRUGS (1)
  1. STRATTERA [Suspect]
     Active Substance: ATOMOXETINE HYDROCHLORIDE
     Indication: DISTURBANCE IN ATTENTION
     Dosage: 40 MG, DAILY (1/D)
     Route: 065
     Dates: start: 20091105, end: 20091105

REACTIONS (3)
  - Tremor [Unknown]
  - Groin pain [Unknown]
  - Dysuria [Unknown]

NARRATIVE: CASE EVENT DATE: 20091105
